FAERS Safety Report 7224172-9 (Version None)
Quarter: 2011Q1

REPORT INFORMATION
  Report Type: 
  Country: None (occurrence: None)
  Receive Date: 20110106
  Receipt Date: 20110106
  Transmission Date: 20110831
  Serious: Yes (Hospitalization, Disabling, Other)
  Sender: FDA-Public Use
  Company Number: None

PATIENT
  Age: 76 Year
  Sex: Female

DRUGS (1)
  1. DRONEDARONE HCL [Suspect]

REACTIONS (9)
  - LUNG INFILTRATION [None]
  - PYREXIA [None]
  - CHILLS [None]
  - PULMONARY TOXICITY [None]
  - HYPERHIDROSIS [None]
  - DYSPNOEA [None]
  - MALAISE [None]
  - RENAL IMPAIRMENT [None]
  - HEADACHE [None]
